FAERS Safety Report 7090265-2 (Version None)
Quarter: 2010Q4

REPORT INFORMATION
  Report Type: 
  Country: None (occurrence: None)
  Receive Date: 20101105
  Receipt Date: 20101105
  Transmission Date: 20110411
  Serious: Yes (Other)
  Sender: FDA-Public Use
  Company Number: None

PATIENT
  Age: 45 Year
  Sex: Female
  Weight: 72.5755 kg

DRUGS (1)
  1. MELOXICAM [Suspect]
     Indication: MUSCULOSKELETAL PAIN
     Dosage: 1 DLY PO
     Route: 048
     Dates: start: 20100924, end: 20101102

REACTIONS (15)
  - ASTHENIA [None]
  - BACK PAIN [None]
  - CHEST DISCOMFORT [None]
  - CHEST PAIN [None]
  - CHROMATURIA [None]
  - CONFUSIONAL STATE [None]
  - DRY MOUTH [None]
  - DYSARTHRIA [None]
  - DYSPNOEA [None]
  - FATIGUE [None]
  - HEADACHE [None]
  - HEART RATE INCREASED [None]
  - HEART RATE IRREGULAR [None]
  - MICTURITION DISORDER [None]
  - MUSCLE SPASMS [None]
